FAERS Safety Report 8289052-9 (Version None)
Quarter: 2012Q2

REPORT INFORMATION
  Report Type: 
  Country: None (occurrence: None)
  Receive Date: 20120417
  Receipt Date: 20120405
  Transmission Date: 20120825
  Serious: Yes (Hospitalization, Other)
  Sender: FDA-Public Use
  Company Number: AU-JNJFOC-20110708486

PATIENT
  Sex: Female

DRUGS (2)
  1. XARELTO [Suspect]
     Indication: THROMBOSIS PROPHYLAXIS
     Route: 065
     Dates: start: 20110201, end: 20110201
  2. DALTEPARIN SODIUM [Concomitant]
     Indication: HIP ARTHROPLASTY
     Dates: start: 20110222

REACTIONS (2)
  - ADRENAL CORTEX NECROSIS [None]
  - HEPARIN-INDUCED THROMBOCYTOPENIA [None]
